FAERS Safety Report 24374526 (Version 1)
Quarter: 2024Q3

REPORT INFORMATION
  Report Type: Spontaneous
  Country: FR (occurrence: FR)
  Receive Date: 20240927
  Receipt Date: 20240927
  Transmission Date: 20241016
  Serious: No
  Sender: PFIZER
  Company Number: FR-PFIZER INC-PV202400125420

PATIENT
  Age: 13 Year
  Sex: Male

DRUGS (1)
  1. NGENLA [Suspect]
     Active Substance: SOMATROGON-GHLA
     Dosage: 29 MG
     Route: 058

REACTIONS (6)
  - Injection site pain [Recovered/Resolved]
  - Injection site mass [Recovered/Resolved]
  - Diarrhoea [Not Recovered/Not Resolved]
  - Accidental underdose [Unknown]
  - Wrong technique in device usage process [Unknown]
  - Patient-device incompatibility [Recovered/Resolved]
